FAERS Safety Report 17284092 (Version 1)
Quarter: 2020Q1

REPORT INFORMATION
  Report Type: Spontaneous
  Country: JP (occurrence: JP)
  Receive Date: 20200117
  Receipt Date: 20200117
  Transmission Date: 20200409
  Serious: Yes (Death)
  Sender: FDA-Public Use
  Company Number: JP-EISAI MEDICAL RESEARCH-EC-2020-068608

PATIENT
  Age: 69 Year
  Sex: Female

DRUGS (3)
  1. LENVIMA [Suspect]
     Active Substance: LENVATINIB
     Indication: ANAPLASTIC THYROID CANCER
     Route: 048
     Dates: start: 20171228, end: 20180718
  2. LENVIMA [Suspect]
     Active Substance: LENVATINIB
     Dosage: 14 MG FOR TWO DAYS, 8 MG FOR ONE DAY
     Route: 048
     Dates: start: 20180719, end: 20180910
  3. LENVIMA [Suspect]
     Active Substance: LENVATINIB
     Route: 048
     Dates: start: 20181006

REACTIONS (3)
  - Death [Fatal]
  - Blood pressure increased [Unknown]
  - Epistaxis [Unknown]

NARRATIVE: CASE EVENT DATE: 20180117
